FAERS Safety Report 19056799 (Version 5)
Quarter: 2022Q1

REPORT INFORMATION
  Report Type: Report from Study
  Country: US (occurrence: US)
  Receive Date: 20210325
  Receipt Date: 20220212
  Transmission Date: 20220423
  Serious: Yes (Other)
  Sender: FDA-Public Use
  Company Number: NVSC2021US062814

PATIENT
  Age: 61 Year
  Sex: Female

DRUGS (3)
  1. ENTRESTO [Suspect]
     Active Substance: SACUBITRIL\VALSARTAN
     Indication: Product used for unknown indication
     Dosage: 50 MG, BID (24/26MG)
     Route: 048
     Dates: start: 20210219
  2. ENTRESTO [Suspect]
     Active Substance: SACUBITRIL\VALSARTAN
     Dosage: 49/51 MG
     Route: 048
  3. BUMEX [Concomitant]
     Active Substance: BUMETANIDE
     Indication: Product used for unknown indication
     Dosage: UNK
     Route: 065

REACTIONS (17)
  - Renal impairment [Unknown]
  - Weight increased [Recovering/Resolving]
  - Abdominal distension [Recovering/Resolving]
  - Blood urea increased [Not Recovered/Not Resolved]
  - Blood creatinine increased [Recovering/Resolving]
  - Arthralgia [Recovering/Resolving]
  - Exercise tolerance decreased [Recovering/Resolving]
  - Thyroid function test [Unknown]
  - Vomiting [Recovering/Resolving]
  - Nausea [Recovering/Resolving]
  - Swelling [Unknown]
  - Limb discomfort [Unknown]
  - Influenza like illness [Recovering/Resolving]
  - Nervousness [Recovering/Resolving]
  - Bone pain [Recovering/Resolving]
  - Cough [Recovering/Resolving]
  - Product dose omission issue [Unknown]

NARRATIVE: CASE EVENT DATE: 20210308
